FAERS Safety Report 8375085-0 (Version None)
Quarter: 2012Q2

REPORT INFORMATION
  Report Type: 
  Country: None (occurrence: None)
  Receive Date: 20120521
  Receipt Date: 20120509
  Transmission Date: 20120825
  Serious: Yes (Hospitalization)
  Sender: FDA-Public Use
  Company Number: AU-BAXTER-2012BAX005158

PATIENT
  Sex: Female

DRUGS (1)
  1. KIOVIG [Suspect]
     Route: 042
     Dates: start: 20120504

REACTIONS (4)
  - ANXIETY [None]
  - CHILLS [None]
  - TACHYCARDIA [None]
  - TACHYPNOEA [None]
